FAERS Safety Report 20120476 (Version 1)
Quarter: 2021Q4

REPORT INFORMATION
  Report Type: Spontaneous
  Country: IN (occurrence: IN)
  Receive Date: 20211126
  Receipt Date: 20211126
  Transmission Date: 20220303
  Serious: Yes (Other)
  Sender: FDA-Public Use
  Company Number: IN-PFIZER INC-2021739425

PATIENT
  Age: 69 Year
  Sex: Female

DRUGS (2)
  1. PALBOCICLIB [Suspect]
     Active Substance: PALBOCICLIB
     Indication: Breast cancer metastatic
     Dosage: 125 MG, 1X/DAY, CYCLIC
     Route: 048
     Dates: start: 20210403
  2. PALBOCICLIB [Suspect]
     Active Substance: PALBOCICLIB
     Dosage: 100 MG
     Route: 048

REACTIONS (15)
  - Fatigue [Unknown]
  - Dyspnoea [Recovered/Resolved]
  - Eating disorder [Unknown]
  - Hyperhidrosis [Unknown]
  - Speech disorder [Unknown]
  - Feeling hot [Unknown]
  - Pain [Recovered/Resolved]
  - Diarrhoea [Unknown]
  - Abdominal pain upper [Unknown]
  - Neoplasm progression [Unknown]
  - Platelet count decreased [Unknown]
  - Red blood cell count abnormal [Unknown]
  - Hyperchlorhydria [Recovered/Resolved]
  - White blood cell count decreased [Unknown]
  - Pharyngeal disorder [Unknown]

NARRATIVE: CASE EVENT DATE: 20210101
